FAERS Safety Report 5136034-1 (Version None)
Quarter: 2006Q4

REPORT INFORMATION
  Report Type: 
  Country: None (occurrence: None)
  Receive Date: 20061023
  Receipt Date: 20061017
  Transmission Date: 20070319
  Serious: No
  Sender: FDA-Public Use
  Company Number: US-2006-027641

PATIENT
  Age: 29 Year
  Sex: Female
  Weight: 60 kg

DRUGS (1)
  1. MIRENA [Suspect]
     Indication: CONTRACEPTION
     Dosage: 20 UG/DAY, CONT, INTRA-UTERINE
     Route: 015
     Dates: start: 20060718, end: 20060919

REACTIONS (6)
  - ASTIGMATISM [None]
  - CONDITION AGGRAVATED [None]
  - GINGIVAL PAIN [None]
  - MENOMETRORRHAGIA [None]
  - SENSITIVITY OF TEETH [None]
  - VISION BLURRED [None]
